FAERS Safety Report 13519354 (Version 1)
Quarter: 2017Q2

REPORT INFORMATION
  Report Type: Spontaneous
  Country: US (occurrence: US)
  Receive Date: 20170505
  Receipt Date: 20170505
  Transmission Date: 20170830
  Serious: No
  Sender: FDA-Public Use
  Company Number: US-009507513-1704USA011893

PATIENT
  Age: 22 Year
  Sex: Female

DRUGS (1)
  1. NEXPLANON [Suspect]
     Active Substance: ETONOGESTREL
     Dosage: 1 DF, UNK
     Route: 059
     Dates: start: 20140415, end: 20170412

REACTIONS (5)
  - Implant site warmth [Unknown]
  - Difficulty removing drug implant [Recovered/Resolved]
  - Implant site pain [Unknown]
  - Implant site erythema [Unknown]
  - Implant site swelling [Unknown]

NARRATIVE: CASE EVENT DATE: 201704
